FAERS Safety Report 5397824-3 (Version None)
Quarter: 2007Q3

REPORT INFORMATION
  Report Type: 
  Country: None (occurrence: None)
  Receive Date: 20070723
  Receipt Date: 20070705
  Transmission Date: 20080115
  Serious: Yes (Death, Other)
  Sender: FDA-Public Use
  Company Number: 2005JP002194

PATIENT
  Age: 60 Year
  Sex: Male

DRUGS (4)
  1. PROGRAF [Suspect]
     Indication: LIVER TRANSPLANT
  2. CYCLOPHOSPHAMIDE [Concomitant]
  3. MYCOPHENOLATE MOFETIL [Concomitant]
  4. PGE 1 (ALPROSTADIL) [Concomitant]

REACTIONS (2)
  - PYOTHORAX [None]
  - SEPSIS [None]
